FAERS Safety Report 9476153 (Version 1)
Quarter: 2013Q3

REPORT INFORMATION
  Report Type: Spontaneous
  Country: DE (occurrence: None)
  Receive Date: 20130821
  Receipt Date: 20130821
  Transmission Date: 20140515
  Serious: Yes (Hospitalization)
  Sender: FDA-Public Use
  Company Number: AG-2013-0068

PATIENT
  Age: 71 Year
  Sex: Male
  Weight: 97.3 kg

DRUGS (15)
  1. CHLORAMBUCIL [Suspect]
     Indication: CHRONIC LYMPHOCYTIC LEUKAEMIA
     Dosage: 46 MG LAND 15 DAY OF 28 DAY CYCLE
     Route: 048
     Dates: start: 20120418, end: 20120808
  2. RITUXIMAB [Suspect]
     Indication: CHRONIC LYMPHOCYTIC LEUKAEMIA
     Dosage: 1 IN 28 D
     Route: 042
     Dates: start: 20120418, end: 20120808
  3. AMIODARONE (AMIODARONE) [Concomitant]
  4. PREDNISOLONE (PREDNISOLONE) [Concomitant]
  5. RAMIPRIL (RAMIPRIL) [Concomitant]
  6. VERAPAMIL (VERAPAMIL) [Concomitant]
  7. FUROSEMIDE (FUROSEMIDE) [Concomitant]
  8. ALLOPURINOL [Concomitant]
  9. ASS (ACETYLSALICYLIC ACID) [Concomitant]
  10. LEVOFLOXACIN (LEVOFLOXACIN) [Concomitant]
  11. PANTOZOL (PANTOPRAZOLE) [Concomitant]
  12. INSULIN LENTE (INSULINS AND ANALOGUES) [Concomitant]
  13. SPIRIVA (TIOTROPIUM BROMIDE) [Concomitant]
  14. SYMBICORT (FORMOTEROL AND OTHER DRUGS FOR OBSTRUCTIVE AIRWAY DISEASES) [Concomitant]
  15. NOVALGIN (PYRAZOLONE DERIVATIVES) [Concomitant]

REACTIONS (8)
  - Pyrexia [None]
  - Bacterial infection [None]
  - Pancytopenia [None]
  - Bronchitis [None]
  - General physical health deterioration [None]
  - Cardiovascular disorder [None]
  - Asthenia [None]
  - Tachycardia [None]
